FAERS Safety Report 6001547-7 (Version None)
Quarter: 2008Q4

REPORT INFORMATION
  Report Type: 
  Country: None (occurrence: None)
  Receive Date: 20081215
  Receipt Date: 20071107
  Transmission Date: 20090506
  Serious: No
  Sender: FDA-Public Use
  Company Number: US-AMGEN-KDL251464

PATIENT
  Sex: Male
  Weight: 95.3 kg

DRUGS (11)
  1. ENBREL [Suspect]
     Indication: RHEUMATOID ARTHRITIS
     Route: 058
     Dates: start: 20070919
  2. METHOTREXATE [Concomitant]
     Route: 048
     Dates: start: 20070710
  3. LOTREL [Concomitant]
  4. HYDROCHLOROTHIAZIDE [Concomitant]
  5. KCL-RETARD [Concomitant]
  6. SINGULAIR [Concomitant]
  7. CALCIUM [Concomitant]
  8. ADVAIR DISKUS 250/50 [Concomitant]
  9. INSULIN [Concomitant]
  10. MOTRIN [Concomitant]
  11. FOLIC ACID [Concomitant]

REACTIONS (7)
  - ARTHRALGIA [None]
  - BONE PAIN [None]
  - INSOMNIA [None]
  - JOINT SWELLING [None]
  - MUSCULOSKELETAL PAIN [None]
  - OEDEMA PERIPHERAL [None]
  - THERAPEUTIC RESPONSE DECREASED [None]
